FAERS Safety Report 8240340-1 (Version None)
Quarter: 2012Q1

REPORT INFORMATION
  Report Type: 
  Country: None (occurrence: None)
  Receive Date: 20120328
  Receipt Date: 20120328
  Transmission Date: 20120608
  Serious: Yes (Other)
  Sender: FDA-Public Use
  Company Number: DE-BAYER-2012-029944

PATIENT
  Age: 42 Year
  Sex: Male

DRUGS (1)
  1. GADAVIST [Suspect]
     Indication: HUNTINGTON'S DISEASE
     Dosage: 7.5 ML, ONCE
     Route: 042
     Dates: start: 20120327, end: 20120327

REACTIONS (4)
  - LOSS OF CONSCIOUSNESS [None]
  - CARDIOVASCULAR DISORDER [None]
  - NAUSEA [None]
  - VOMITING [None]
